FAERS Safety Report 8990853 (Version 1)
Quarter: 2012Q4

REPORT INFORMATION
  Report Type: Spontaneous
  Country: US (occurrence: None)
  Receive Date: 20121221
  Receipt Date: 20121221
  Transmission Date: 20130627
  Serious: Yes (Hospitalization)
  Sender: FDA-Public Use
  Company Number: FK201203817

PATIENT
  Age: 67 Year

DRUGS (2)
  1. DEXAMETHASONE INJECTION (MANUFACTURER UNKNOWN)(DEXAMETHASONE SODIUM PHOSPHATE)(DEXAMETHASONE SODIUM^PHOSPHATE) [Suspect]
     Indication: MULTIPLE MYELOMA
  2. VELCADE [Suspect]
     Indication: MULTIPLE MYELOMA

REACTIONS (7)
  - Coronary artery disease [None]
  - Asthenia [None]
  - Dizziness [None]
  - Chills [None]
  - Mental status changes [None]
  - Anaemia [None]
  - Thrombocytopenia [None]
